FAERS Safety Report 15946693 (Version 1)
Quarter: 2019Q1

REPORT INFORMATION
  Report Type: Spontaneous
  Country: US (occurrence: US)
  Receive Date: 20190211
  Receipt Date: 20190211
  Transmission Date: 20190417
  Serious: No
  Sender: FDA-Public Use
  Company Number: US-PFIZER INC-2017443972

PATIENT
  Age: 69 Year
  Sex: Female
  Weight: 67.57 kg

DRUGS (22)
  1. GENOTROPIN MQ [Suspect]
     Active Substance: SOMATROPIN
     Indication: HYPOTHALAMO-PITUITARY DISORDER
     Dosage: 0.4 MG, 1X/DAY
     Dates: start: 2001
  2. HYDROCORTISONE. [Concomitant]
     Active Substance: HYDROCORTISONE
     Dosage: 10 MG, 2X/DAY (TAKES 1.5 TABLETS EVERY MORNING, 1/2 A TABLET AT 4 PM)
  3. DULOXETINE DR [Concomitant]
     Active Substance: DULOXETINE
     Indication: ARTHRITIS
     Dosage: 30 MG, 1X/DAY
     Route: 048
     Dates: start: 201709
  4. PRALUENT [Concomitant]
     Active Substance: ALIROCUMAB
     Indication: BLOOD CHOLESTEROL ABNORMAL
     Dosage: 75 MG, UNK (INJECTION EVERY 14 DAYS)
  5. BENADRYL [Concomitant]
     Active Substance: DIPHENHYDRAMINE HYDROCHLORIDE
     Indication: SLEEP DISORDER
     Dosage: UNK
  6. COENZYME Q10 [Concomitant]
     Active Substance: UBIDECARENONE
     Indication: PAIN IN EXTREMITY
     Dosage: 200 MG, 1X/DAY (SOFT GEL)
     Route: 048
  7. ACETAMINOPHEN. [Concomitant]
     Active Substance: ACETAMINOPHEN
     Indication: PAIN
  8. GENOTROPIN MQ [Suspect]
     Active Substance: SOMATROPIN
     Dosage: 0.4 MG, DAILY
  9. AMLODIPINE BESILATE [Concomitant]
     Active Substance: AMLODIPINE BESYLATE
     Indication: BLOOD PRESSURE SYSTOLIC INCREASED
     Dosage: 2.5 MG, DAILY
     Route: 048
     Dates: start: 2017
  10. GENOTROPIN MQ [Suspect]
     Active Substance: SOMATROPIN
     Dosage: 0.4 MG, WEEKLY (7 DAYS/WEEK)
     Dates: start: 200205, end: 20171123
  11. CLOPIDOGREL [Concomitant]
     Active Substance: CLOPIDOGREL BISULFATE
     Indication: CARDIAC DISORDER
     Dosage: 75 MG, DAILY (EVERY DAY)
     Route: 048
  12. VITAMIN B12 [Concomitant]
     Active Substance: CYANOCOBALAMIN
     Indication: VITAMIN B12 DEFICIENCY
     Dosage: 1000 UG, 1X/DAY
     Route: 048
  13. BIOTIN [Concomitant]
     Active Substance: BIOTIN
     Indication: ALOPECIA
     Dosage: 10000 UG, 1X/DAY
     Route: 048
  14. TRADJENTA [Concomitant]
     Active Substance: LINAGLIPTIN
     Indication: DIABETES MELLITUS
     Dosage: 5 MG, DAILY
     Route: 048
  15. HYDROCORTISONE. [Concomitant]
     Active Substance: HYDROCORTISONE
     Indication: ENDOCRINE DISORDER
     Dosage: 10 MG, UNK (AS DIRECTED)
     Route: 048
  16. SYNTHROID [Concomitant]
     Active Substance: LEVOTHYROXINE SODIUM
     Indication: THYROID DISORDER
     Dosage: 0.05 MG, 1X/DAY (0.05MG TABLET BY MOUTH IN THE MORNING ON EMPTY STOMACH 30-60 MIN BEFORE BREAKFAST)
     Route: 048
     Dates: start: 201704
  17. ESOMEPRAZOLE MAGNESIUM. [Concomitant]
     Active Substance: ESOMEPRAZOLE MAGNESIUM
     Indication: GASTROOESOPHAGEAL REFLUX DISEASE
     Dosage: 40 MG, AS NEEDED (BY MOUTH DAILY AS NEEDED)
     Route: 048
  18. GENOTROPIN MQ [Suspect]
     Active Substance: SOMATROPIN
     Dosage: 0.4 MG, WEEKLY (0.4MG 7 DAYS/WEEK)
     Dates: start: 200205
  19. PRAVASTATIN. [Concomitant]
     Active Substance: PRAVASTATIN
     Indication: CARDIAC DISORDER
     Dosage: 10 MG, DAILY
     Route: 048
  20. GENOTROPIN MQ [Suspect]
     Active Substance: SOMATROPIN
     Indication: PITUITARY TUMOUR
     Dosage: 0.4 MG, 1X/DAY (0.4MG SUBCUTANEOUS ONCE DAILY 7 DAYS A WEEK)
     Route: 058
     Dates: start: 2000, end: 201711
  21. FERROUS SULFATE. [Concomitant]
     Active Substance: FERROUS SULFATE
     Indication: ANAEMIA
     Dosage: 325 MG, 2X/DAY
     Route: 048
  22. ACETAMINOPHEN. [Concomitant]
     Active Substance: ACETAMINOPHEN
     Indication: ARTHRITIS
     Dosage: 1300 MG, AS NEEDED (650MG TABLETS, TAKE 2 TABLETS AS NEEDED FOR PAIN)

REACTIONS (13)
  - Insulin-like growth factor decreased [Unknown]
  - Weight decreased [Unknown]
  - Temperature intolerance [Unknown]
  - Hypoaesthesia [Unknown]
  - Fatigue [Unknown]
  - Aspartate aminotransferase increased [Unknown]
  - Blood thyroid stimulating hormone decreased [Unknown]
  - Tremor [Unknown]
  - Diarrhoea [Unknown]
  - Cough [Unknown]
  - Palpitations [Unknown]
  - Alanine aminotransferase increased [Unknown]
  - Blood cholesterol increased [Unknown]
